FAERS Safety Report 5098759-6 (Version None)
Quarter: 2006Q3

REPORT INFORMATION
  Report Type: 
  Country: None (occurrence: None)
  Receive Date: 20060907
  Receipt Date: 20060830
  Transmission Date: 20061208
  Serious: Yes (Other)
  Sender: FDA-Public Use
  Company Number: NO-GLAXOSMITHKLINE-B0436473A

PATIENT
  Sex: Male
  Weight: 130 kg

DRUGS (3)
  1. AVANDIA [Suspect]
     Route: 065
     Dates: start: 20010101
  2. HYPERTENSION MED [Concomitant]
     Route: 048
  3. NPH INSULIN [Concomitant]

REACTIONS (4)
  - ANEURYSM [None]
  - DIABETIC RETINOPATHY [None]
  - DRUG INEFFECTIVE [None]
  - MACULAR OEDEMA [None]
